FAERS Safety Report 26154517 (Version 1)
Quarter: 2025Q4

REPORT INFORMATION
  Report Type: Spontaneous
  Country: US (occurrence: US)
  Receive Date: 20251215
  Receipt Date: 20251215
  Transmission Date: 20260117
  Serious: No
  Sender: ELI LILLY AND COMPANY
  Company Number: US-ELI_LILLY_AND_COMPANY-US202512002893

PATIENT
  Age: 79 Year
  Sex: Male

DRUGS (1)
  1. JAYPIRCA [Suspect]
     Active Substance: PIRTOBRUTINIB
     Indication: Lymphoma
     Dosage: 50 MG, UNKNOWN
     Route: 048
     Dates: start: 20250201

REACTIONS (1)
  - Contusion [Unknown]
